FAERS Safety Report 5162145-0 (Version None)
Quarter: 2006Q4

REPORT INFORMATION
  Report Type: 
  Country: None (occurrence: None)
  Receive Date: 20061121
  Receipt Date: 20061109
  Transmission Date: 20070319
  Serious: Yes (Hospitalization, Other)
  Sender: FDA-Public Use
  Company Number: FRWYE318726SEP03

PATIENT
  Age: 65 Year
  Sex: Female

DRUGS (3)
  1. NEORAL [Suspect]
     Indication: PROPHYLAXIS AGAINST TRANSPLANT REJECTION
     Dosage: 100 MG 1X PER 1 DAY ORAL
     Route: 048
     Dates: start: 20020916, end: 20030317
  2. CELLCEPT [Concomitant]
  3. PREDNISONE [Concomitant]

REACTIONS (3)
  - OEDEMA PERIPHERAL [None]
  - PERICARDITIS [None]
  - PULMONARY HYPERTENSION [None]
